FAERS Safety Report 7804875-5 (Version None)
Quarter: 2011Q4

REPORT INFORMATION
  Report Type: 
  Country: None (occurrence: None)
  Receive Date: 20111010
  Receipt Date: 20111003
  Transmission Date: 20120403
  Serious: Yes (Hospitalization)
  Sender: FDA-Public Use
  Company Number: FR-MERCK-1110FRA00018

PATIENT
  Age: 86 Year
  Sex: Male
  Weight: 75 kg

DRUGS (3)
  1. METFORMIN [Concomitant]
     Indication: TYPE 2 DIABETES MELLITUS
     Route: 048
     Dates: end: 20101108
  2. JANUVIA [Suspect]
     Indication: TYPE 2 DIABETES MELLITUS
     Route: 048
     Dates: start: 20100902
  3. METFORMIN [Concomitant]
     Route: 048
     Dates: start: 20101109

REACTIONS (1)
  - DRUG INEFFECTIVE [None]
